FAERS Safety Report 15792367 (Version 2)
Quarter: 2019Q1

REPORT INFORMATION
  Report Type: Spontaneous
  Country: US (occurrence: US)
  Receive Date: 20190107
  Receipt Date: 20190130
  Transmission Date: 20190417
  Serious: No
  Sender: FDA-Public Use
  Company Number: US-JNJFOC-20181221826

PATIENT
  Sex: Female

DRUGS (2)
  1. WOMENS ROGAINE UNSCENTED [Suspect]
     Active Substance: MINOXIDIL
     Route: 061
  2. WOMENS ROGAINE UNSCENTED [Suspect]
     Active Substance: MINOXIDIL
     Indication: ALOPECIA
     Dosage: 1 AND A HALF CAPS FULL EVERY OTHER DAY
     Route: 061

REACTIONS (4)
  - Inappropriate schedule of product administration [Unknown]
  - Product physical consistency issue [Unknown]
  - Overdose [Unknown]
  - Hair texture abnormal [Not Recovered/Not Resolved]
